FAERS Safety Report 25561240 (Version 1)
Quarter: 2025Q3

REPORT INFORMATION
  Report Type: Report from Study
  Country: US (occurrence: US)
  Receive Date: 20250716
  Receipt Date: 20250716
  Transmission Date: 20251020
  Serious: Yes (Other)
  Sender: ABBVIE
  Company Number: US-ABBVIE-6368668

PATIENT
  Age: 69 Year
  Sex: Female

DRUGS (2)
  1. SKYRIZI [Suspect]
     Active Substance: RISANKIZUMAB-RZAA
     Indication: Product used for unknown indication
     Route: 058
     Dates: start: 20230303
  2. COSENTYX [Suspect]
     Active Substance: SECUKINUMAB
     Indication: Product used for unknown indication
     Route: 065

REACTIONS (8)
  - Eye haemorrhage [Unknown]
  - Fatigue [Unknown]
  - Drug ineffective [Unknown]
  - Lower limb fracture [Unknown]
  - Road traffic accident [Unknown]
  - Concussion [Unknown]
  - Upper limb fracture [Unknown]
  - Trigger finger [Unknown]

NARRATIVE: CASE EVENT DATE: 20240626
